FAERS Safety Report 21823227 (Version 1)
Quarter: 2023Q1

REPORT INFORMATION
  Report Type: Spontaneous
  Country: US (occurrence: None)
  Receive Date: 20230104
  Receipt Date: 20230104
  Transmission Date: 20230417
  Serious: Yes (Disabling)
  Sender: FDA-Public Use
  Company Number: None

PATIENT
  Age: 68 Year
  Sex: Female
  Weight: 101.7 kg

DRUGS (9)
  1. BACTRIM DS [Suspect]
     Active Substance: SULFAMETHOXAZOLE\TRIMETHOPRIM
     Indication: Abscess
     Dates: start: 20220906, end: 20220910
  2. DEVICE [Concomitant]
     Active Substance: DEVICE
  3. COMPRESSION PUMPS FOR LYMPHATIC DRAINAGE [Concomitant]
  4. LATANOPROST [Concomitant]
     Active Substance: LATANOPROST
  5. HYDROCHLOROTHIAZIDE [Concomitant]
     Active Substance: HYDROCHLOROTHIAZIDE
  6. OLMESARTAN MEDOXOMIL [Concomitant]
     Active Substance: OLMESARTAN MEDOXOMIL
  7. Multi Vitamin [Concomitant]
  8. VITAMIN D [Concomitant]
     Active Substance: VITAMIN D NOS
  9. DIMETHYL SULFONE [Concomitant]
     Active Substance: DIMETHYL SULFONE

REACTIONS (11)
  - Arthralgia [None]
  - Myalgia [None]
  - Weight bearing difficulty [None]
  - Sciatica [None]
  - Osteoarthritis [None]
  - Muscular weakness [None]
  - Impaired driving ability [None]
  - Decreased activity [None]
  - Lipoedema [None]
  - Mastocytosis [None]
  - Lymphatic obstruction [None]

NARRATIVE: CASE EVENT DATE: 20220908
